FAERS Safety Report 4428747-1 (Version None)
Quarter: 2004Q3

REPORT INFORMATION
  Report Type: 
  Country: None (occurrence: None)
  Receive Date: 20040818
  Receipt Date: 20040412
  Transmission Date: 20050211
  Serious: No
  Sender: FDA-Public Use
  Company Number: US-BRISTOL-MYERS SQUIBB COMPANY-12557369

PATIENT

DRUGS (1)
  1. TEQUIN [Suspect]
     Dosage: ^TEQ-PAQ 7X400 MG TABS^
     Route: 048

REACTIONS (3)
  - AGEUSIA [None]
  - DRY MOUTH [None]
  - TONGUE DRY [None]
